FAERS Safety Report 23265609 (Version 1)
Quarter: 2023Q4

REPORT INFORMATION
  Report Type: Report from Study
  Country: RU (occurrence: RU)
  Receive Date: 20231206
  Receipt Date: 20231206
  Transmission Date: 20240110
  Serious: Yes (Other)
  Sender: FDA-Public Use
  Company Number: RU-002147023-NVSC2023RU255717

PATIENT
  Age: 43 Year
  Sex: Male

DRUGS (1)
  1. SIPONIMOD [Suspect]
     Active Substance: SIPONIMOD
     Indication: Secondary progressive multiple sclerosis
     Dosage: 1 DOSAGE FORM, QD
     Route: 048
     Dates: start: 20210331

REACTIONS (9)
  - Leukopenia [Unknown]
  - Urinary retention [Recovering/Resolving]
  - Musculoskeletal stiffness [Recovering/Resolving]
  - Hypoaesthesia [Recovering/Resolving]
  - Alanine aminotransferase increased [Unknown]
  - Balance disorder [Unknown]
  - Muscular weakness [Recovering/Resolving]
  - Micturition urgency [Recovering/Resolving]
  - Lymphopenia [Unknown]

NARRATIVE: CASE EVENT DATE: 20221001
